FAERS Safety Report 5700655-5 (Version None)
Quarter: 2008Q2

REPORT INFORMATION
  Report Type: 
  Country: None (occurrence: None)
  Receive Date: 20080409
  Receipt Date: 20080409
  Transmission Date: 20081010
  Serious: No
  Sender: FDA-Public Use
  Company Number: None

PATIENT

DRUGS (2)
  1. METFORMIN HCL [Suspect]
  2. METFORMIN HCL [Suspect]

REACTIONS (1)
  - THERAPEUTIC PRODUCT CONTAMINATION [None]
